FAERS Safety Report 8766599 (Version 1)
Quarter: 2012Q4

REPORT INFORMATION
  Report Type: 
  Country: BR (occurrence: BR)
  Receive Date: 20120904
  Receipt Date: 20120904
  Transmission Date: 20130627
  Serious: Yes (Disabling, Other)
  Sender: FDA-Public Use
  Company Number: BR-ELI_LILLY_AND_COMPANY-BR201208008706

PATIENT
  Age: 66 Year
  Sex: Male

DRUGS (2)
  1. HUMALOG LISPRO [Suspect]
     Indication: TYPE 2 DIABETES MELLITUS
     Dosage: 24 IU, each morning
     Route: 058
  2. HUMALOG LISPRO [Suspect]
     Dosage: 20 IU, each evening
     Route: 058

REACTIONS (4)
  - Blindness [Not Recovered/Not Resolved]
  - Retinal detachment [Not Recovered/Not Resolved]
  - Incorrect storage of drug [Unknown]
  - Diabetic complication [Not Recovered/Not Resolved]
